FAERS Safety Report 16685202 (Version 1)
Quarter: 2019Q3

REPORT INFORMATION
  Report Type: Spontaneous
  Country: GB (occurrence: GB)
  Receive Date: 20190808
  Receipt Date: 20190808
  Transmission Date: 20191004
  Serious: Yes (Hospitalization)
  Sender: FDA-Public Use
  Company Number: GB-CELLTRION INC.-2019GB023485

PATIENT

DRUGS (2)
  1. TRUXIMA [Suspect]
     Active Substance: RITUXIMAB-ABBS
     Indication: RHEUMATOID ARTHRITIS
     Dosage: UNK, SECOND DOSE
  2. TRUXIMA [Suspect]
     Active Substance: RITUXIMAB-ABBS
     Dosage: UNK
     Dates: start: 201802, end: 201802

REACTIONS (2)
  - Drug ineffective [Unknown]
  - Serum sickness [Unknown]
